FAERS Safety Report 8912684 (Version 3)
Quarter: 2016Q2

REPORT INFORMATION
  Report Type: Spontaneous
  Country: BR (occurrence: BR)
  Receive Date: 20121116
  Receipt Date: 20160518
  Transmission Date: 20160815
  Serious: Yes (Hospitalization, Other)
  Sender: FDA-Public Use
  Company Number: BR-AMGEN-BRASP2012072429

PATIENT
  Age: 56 Year
  Sex: Female
  Weight: 62 kg

DRUGS (13)
  1. FOLIC ACID. [Concomitant]
     Active Substance: FOLIC ACID
     Dosage: UNK
     Dates: start: 1998
  2. ENBREL [Suspect]
     Active Substance: ETANERCEPT
     Indication: RHEUMATOID ARTHRITIS
     Dosage: 50 MG, ONCE WEEKLY
     Route: 058
     Dates: start: 201208
  3. PREDNISONE. [Concomitant]
     Active Substance: PREDNISONE
     Dosage: TWO TABLETS OF 5 MG DAILY
     Dates: start: 1998
  4. VITAMIN D [Concomitant]
     Active Substance: CHOLECALCIFEROL
     Dosage: UNK
     Dates: start: 1998, end: 201604
  5. LACRIFILM [Concomitant]
     Active Substance: CARBOXYMETHYLCELLULOSE SODIUM
     Dosage: 4 DROPS IN EACH EYE
  6. ENBREL [Suspect]
     Active Substance: ETANERCEPT
     Dosage: 50 MG, (ONCE PER MONTH) MONTHLY
     Route: 058
  7. ABATACEPT [Suspect]
     Active Substance: ABATACEPT
     Indication: RHEUMATOID ARTHRITIS
     Dosage: 50 MG, WEEKLY
     Route: 065
  8. BETASERC [Concomitant]
     Active Substance: BETAHISTINE
     Dosage: 16 MG, 1X/DAY
  9. CALCIUM [Concomitant]
     Active Substance: CALCIUM
     Dosage: ONE TABLET, ONCE DAILY
     Dates: start: 1998, end: 201604
  10. CALCIUM D3 [Concomitant]
     Active Substance: CALCIUM\CHOLECALCIFEROL
     Dosage: 500 MG, 1X/DAY
  11. DIACEREIN [Concomitant]
     Active Substance: DIACEREIN
     Dosage: UNK
     Dates: start: 201511
  12. METHOTREXATE [Concomitant]
     Active Substance: METHOTREXATE
     Dosage: 25 MG, ONCE WEEKLY
     Dates: start: 1998
  13. ALENDRONATE [Concomitant]
     Active Substance: ALENDRONATE SODIUM
     Dosage: UNK
     Dates: start: 1998, end: 201604

REACTIONS (9)
  - Product use issue [Unknown]
  - Influenza [Recovered/Resolved]
  - Injection site pain [Recovered/Resolved]
  - Wrong technique in product usage process [Recovered/Resolved]
  - Injection site erythema [Recovered/Resolved]
  - Injection site mass [Recovered/Resolved]
  - Drug ineffective [Unknown]
  - Bone disorder [Recovered/Resolved]
  - Injection site pruritus [Recovered/Resolved]

NARRATIVE: CASE EVENT DATE: 2012
